FAERS Safety Report 25511300 (Version 1)
Quarter: 2025Q3

REPORT INFORMATION
  Report Type: Spontaneous
  Country: US (occurrence: US)
  Receive Date: 20250703
  Receipt Date: 20250703
  Transmission Date: 20251020
  Serious: No
  Sender: RADIUS PHARM
  Company Number: US-RADIUS HEALTH INC.-2024US004266

PATIENT
  Sex: Female

DRUGS (1)
  1. TYMLOS [Suspect]
     Active Substance: ABALOPARATIDE
     Indication: Senile osteoporosis
     Route: 058

REACTIONS (13)
  - Fatigue [Unknown]
  - Injection site bruising [Unknown]
  - Constipation [Unknown]
  - Flatulence [Unknown]
  - Abdominal pain [Unknown]
  - Dizziness [Recovered/Resolved]
  - Injection site erythema [Unknown]
  - Abdominal pain upper [Recovering/Resolving]
  - Injection site reaction [Unknown]
  - Headache [Unknown]
  - Injection site pain [Not Recovered/Not Resolved]
  - Wrong technique in product usage process [Unknown]
  - Injection site haemorrhage [Unknown]
